FAERS Safety Report 21586670 (Version 1)
Quarter: 2022Q4

REPORT INFORMATION
  Report Type: Spontaneous
  Country: AU (occurrence: AU)
  Receive Date: 20221113
  Receipt Date: 20221113
  Transmission Date: 20230113
  Serious: Yes (Other)
  Sender: FDA-Public Use
  Company Number: AU-AMGEN-AUSSP2022192093

PATIENT
  Age: 54 Year
  Sex: Male

DRUGS (2)
  1. BEVACIZUMAB [Suspect]
     Active Substance: BEVACIZUMAB
     Indication: Choroidal neovascularisation
     Dosage: UNK
  2. DIMETHICONE [Concomitant]
     Active Substance: DIMETHICONE
     Indication: Cardiac tamponade
     Dosage: UNK (1300 CENTISTOKE)

REACTIONS (2)
  - Ocular sarcoidosis [Unknown]
  - Off label use [Unknown]
